FAERS Safety Report 23852824 (Version 1)
Quarter: 2024Q2

REPORT INFORMATION
  Report Type: Spontaneous
  Country: DE (occurrence: DE)
  Receive Date: 20240514
  Receipt Date: 20240514
  Transmission Date: 20240716
  Serious: Yes (Congenital Anomaly)
  Sender: FDA-Public Use
  Company Number: None

PATIENT
  Sex: Female
  Weight: 0.325 kg

DRUGS (5)
  1. QUETIAPINE [Suspect]
     Active Substance: QUETIAPINE
     Indication: Major depression
     Dosage: 350 MG/D
     Dates: start: 20221222, end: 20230214
  2. PROGESTERONE [Concomitant]
     Active Substance: PROGESTERONE
     Indication: Prophylaxis
     Dosage: 200 MG/D (0-0-1)
     Dates: start: 20230208, end: 20230214
  3. CYTOTEC [Concomitant]
     Active Substance: MISOPROSTOL
     Indication: Abortion induced
     Dates: start: 20230518, end: 20230518
  4. MIFEPRISTONE [Concomitant]
     Active Substance: MIFEPRISTONE
     Indication: Abortion induced
     Dates: start: 20230518, end: 20230518
  5. ASPIRIN [Concomitant]
     Active Substance: ASPIRIN
     Indication: Prophylaxis
     Dosage: 100 (MG/D)
     Dates: start: 20230125, end: 20230214

REACTIONS (2)
  - Foetal exposure during pregnancy [Unknown]
  - Congenital multiplex arthrogryposis [Not Recovered/Not Resolved]
